FAERS Safety Report 14460767 (Version 1)
Quarter: 2018Q1

REPORT INFORMATION
  Report Type: Report from Study
  Country: DE (occurrence: DE)
  Receive Date: 20180130
  Receipt Date: 20180130
  Transmission Date: 20180509
  Serious: Yes (Hospitalization)
  Sender: FDA-Public Use
  Company Number: DE-BAUSCH-BL-2017-035213

PATIENT
  Age: 67 Year
  Sex: Female
  Weight: 73 kg

DRUGS (15)
  1. ACICLOVIR-RATIOPHARM [Concomitant]
     Active Substance: ACYCLOVIR
     Indication: PROPHYLAXIS
     Dates: start: 20170920
  2. HCT-RATIOPHARM [Concomitant]
     Indication: HYPERTENSION
     Route: 065
  3. ELIQUIS [Concomitant]
     Active Substance: APIXABAN
     Indication: ATRIAL FIBRILLATION
  4. AMLODIPIN-RATIOPHARM [Concomitant]
     Indication: HYPERTENSION
     Route: 065
  5. MCP [Concomitant]
     Active Substance: METOCLOPRAMIDE HYDROCHLORIDE
     Indication: PROPHYLAXIS
  6. DEXAMETHASONE. [Suspect]
     Active Substance: DEXAMETHASONE
     Indication: PLASMA CELL MYELOMA
     Route: 065
     Dates: start: 20170920, end: 20170927
  7. DEXAMETHASONE. [Suspect]
     Active Substance: DEXAMETHASONE
     Route: 065
     Dates: start: 20171011, end: 20171025
  8. VELCADE [Concomitant]
     Active Substance: BORTEZOMIB
     Indication: PROPHYLAXIS
     Route: 058
  9. BISOPROLOL-RATIOPHARM [Concomitant]
     Indication: HYPERTENSION
  10. COTRIM-RATIOPHARM [Concomitant]
     Indication: PROPHYLAXIS
     Dates: start: 20170920
  11. ELIQUIS [Concomitant]
     Active Substance: APIXABAN
     Indication: ARRHYTHMIA
  12. OLMESARTAN [Concomitant]
     Active Substance: OLMESARTAN
     Indication: PROPHYLAXIS
  13. NOVALGIN (METAMIZOLE SODIUM) [Concomitant]
     Active Substance: METAMIZOLE SODIUM
     Indication: PROPHYLAXIS
     Route: 065
     Dates: start: 20170829
  14. REVLIMID [Suspect]
     Active Substance: LENALIDOMIDE
     Indication: PLASMA CELL MYELOMA
     Route: 048
  15. TILIDIN 50 [Concomitant]
     Indication: PROPHYLAXIS
     Dates: start: 20170829, end: 20171011

REACTIONS (3)
  - Cardiac failure chronic [Not Recovered/Not Resolved]
  - Asthenia [Unknown]
  - Dyspnoea [Unknown]

NARRATIVE: CASE EVENT DATE: 20171204
